FAERS Safety Report 17017066 (Version 3)
Quarter: 2020Q2

REPORT INFORMATION
  Report Type: Spontaneous
  Country: JP (occurrence: JP)
  Receive Date: 20191111
  Receipt Date: 20200527
  Transmission Date: 20200713
  Serious: Yes (Hospitalization, Other)
  Sender: FDA-Public Use
  Company Number: JP-ASTRAZENECA-2019SF25227

PATIENT
  Age: 25075 Day
  Sex: Female
  Weight: 55 kg

DRUGS (11)
  1. TAGRISSO [Suspect]
     Active Substance: OSIMERTINIB
     Indication: NON-SMALL CELL LUNG CANCER
     Route: 048
     Dates: start: 20190525, end: 20190826
  2. CANDESARTAN. [Suspect]
     Active Substance: CANDESARTAN
     Dosage: DOSE UNKNOWN
     Route: 048
     Dates: start: 20171106
  3. HEPARINOID [Concomitant]
     Active Substance: CHONDROITIN SULFATE (BOVINE)
     Dosage: DOSE UNKNOWN
     Route: 062
  4. LOPERAMIDE HYDROCHLORIDE. [Concomitant]
     Active Substance: LOPERAMIDE HYDROCHLORIDE
     Dosage: DOSE UNKNOWN
     Route: 048
     Dates: start: 20150126
  5. PRAVASTATIN NA [Suspect]
     Active Substance: PRAVASTATIN SODIUM
     Dosage: DOSE UNKNOWN
     Route: 048
  6. RIZABEN [Concomitant]
     Active Substance: TRANILAST
     Dosage: DOSE UNKNOWN
     Route: 047
  7. AZULENE [Concomitant]
     Active Substance: AZULENE
     Dosage: DOSE UNKNOWN
     Route: 047
  8. HIRUDOID [Concomitant]
     Active Substance: GLYCOSAMINOGLYCANS
     Dosage: DOSE UNKNOWN
     Route: 062
  9. PYRIDOXAL [Concomitant]
     Active Substance: PYRIDOXAL
     Dosage: DOSE UNKNOWN
     Route: 048
     Dates: start: 20160823
  10. MAGMITT [Concomitant]
     Active Substance: MAGNESIUM OXIDE
     Dosage: DOSE UNKNOWN
     Route: 048
     Dates: start: 20151114
  11. NEXIUM [Suspect]
     Active Substance: ESOMEPRAZOLE MAGNESIUM
     Route: 048
     Dates: start: 20151113

REACTIONS (2)
  - Malignant neoplasm progression [Unknown]
  - Interstitial lung disease [Recovered/Resolved]

NARRATIVE: CASE EVENT DATE: 20190827
